FAERS Safety Report 10145448 (Version 1)
Quarter: 2014Q2

REPORT INFORMATION
  Report Type: Spontaneous
  Country: NL (occurrence: NL)
  Receive Date: 20140501
  Receipt Date: 20140501
  Transmission Date: 20141212
  Serious: Yes (Death)
  Sender: FDA-Public Use
  Company Number: NL-AMGEN INC.-NLDSP2014030588

PATIENT
  Age: 65 Year
  Sex: Male

DRUGS (1)
  1. XGEVA [Suspect]
     Indication: PROPHYLAXIS
     Dosage: 120 UNK, Q4WK
     Route: 058
     Dates: start: 20130216, end: 20140425

REACTIONS (1)
  - Death [Fatal]
